FAERS Safety Report 10963795 (Version 2)
Quarter: 2015Q2

REPORT INFORMATION
  Report Type: Spontaneous
  Country: US (occurrence: US)
  Receive Date: 20150328
  Receipt Date: 20150524
  Transmission Date: 20150821
  Serious: No
  Sender: FDA-Public Use
  Company Number: US-JNJFOC-20140504857

PATIENT
  Age: 55 Year
  Sex: Male
  Weight: 119.3 kg

DRUGS (1)
  1. FENTANYL TRANSDERMAL SYSTEM [Suspect]
     Active Substance: FENTANYL
     Indication: SPINAL COLUMN INJURY
     Route: 062
     Dates: start: 201404, end: 201404

REACTIONS (1)
  - Application site burn [Recovered/Resolved]

NARRATIVE: CASE EVENT DATE: 201404
